FAERS Safety Report 8672813 (Version 2)
Quarter: 2012Q4

REPORT INFORMATION
  Report Type: Report from Study
  Country: CA (occurrence: CA)
  Receive Date: 20120719
  Receipt Date: 20121120
  Transmission Date: 20130627
  Serious: Yes (Hospitalization, Other)
  Sender: FDA-Public Use
  Company Number: CA-JNJFOC-20120705708

PATIENT
  Age: 48 Year
  Sex: Female
  Weight: 57.27 kg

DRUGS (2)
  1. REMICADE [Suspect]
     Indication: CROHN^S DISEASE
     Dosage: second restart of infliximab
     Route: 042
     Dates: start: 20110609
  2. REMICADE [Suspect]
     Indication: CROHN^S DISEASE
     Dosage: 3 doses about 2 years ago
     Route: 042

REACTIONS (1)
  - Lupus-like syndrome [Recovered/Resolved]
